FAERS Safety Report 15562284 (Version 1)
Quarter: 2018Q4

REPORT INFORMATION
  Report Type: Spontaneous
  Country: CN (occurrence: CN)
  Receive Date: 20181029
  Receipt Date: 20181029
  Transmission Date: 20190205
  Serious: Yes (Other)
  Sender: FDA-Public Use
  Company Number: CN-PFIZER INC-2018436620

PATIENT
  Age: 28 Year
  Sex: Female

DRUGS (2)
  1. HEMABATE [Suspect]
     Active Substance: CARBOPROST TROMETHAMINE
     Indication: POSTPARTUM HAEMORRHAGE
     Dosage: UNK, ONCE
     Route: 030
     Dates: start: 20180930
  2. OXYTOCIN. [Concomitant]
     Active Substance: OXYTOCIN
     Dosage: UNK

REACTIONS (2)
  - Injection site cellulitis [Recovering/Resolving]
  - Injection site abscess [Recovering/Resolving]

NARRATIVE: CASE EVENT DATE: 20181008
